FAERS Safety Report 5194123-X (Version None)
Quarter: 2006Q4

REPORT INFORMATION
  Report Type: 
  Country: None (occurrence: None)
  Receive Date: 20061222
  Receipt Date: 20061218
  Transmission Date: 20070319
  Serious: Yes (Hospitalization)
  Sender: FDA-Public Use
  Company Number: 163-20785-06080981

PATIENT
  Age: 62 Year
  Sex: Female
  Weight: 48.5349 kg

DRUGS (12)
  1. THALOMID [Suspect]
     Indication: MULTIPLE MYELOMA
     Dosage: 100 MG, 1 IN 1 D, ORAL
     Route: 048
     Dates: start: 20060626, end: 20060701
  2. ACTONEL [Concomitant]
  3. OXYCODONE HCL [Concomitant]
  4. MUCINEX (ENTEX) [Concomitant]
  5. ADVAIR (SERETIDE MITE) (INHALANT) [Concomitant]
  6. COMBIVENT (COMBIVENT) (INHALANT) [Concomitant]
  7. PRILOSEC OTC (OMEPRAZOLE) [Concomitant]
  8. DEXAMETHASONE TAB [Concomitant]
  9. NYSTATIN [Concomitant]
  10. BACTRIM DS [Concomitant]
  11. ASPIRIN [Concomitant]
  12. OXYCONTIN [Concomitant]

REACTIONS (13)
  - CHRONIC OBSTRUCTIVE PULMONARY DISEASE [None]
  - DEHYDRATION [None]
  - DIABETES MELLITUS NON-INSULIN-DEPENDENT [None]
  - GENERALISED ERYTHEMA [None]
  - GLYCOSYLATED HAEMOGLOBIN INCREASED [None]
  - HYPERGLYCAEMIA [None]
  - HYPOTENSION [None]
  - INSULIN C-PEPTIDE INCREASED [None]
  - PNEUMOTHORAX [None]
  - PRURITUS GENERALISED [None]
  - PYREXIA [None]
  - RENAL FAILURE ACUTE [None]
  - TACHYCARDIA [None]
